FAERS Safety Report 12680111 (Version 1)
Quarter: 2016Q3

REPORT INFORMATION
  Report Type: Spontaneous
  Country: US (occurrence: US)
  Receive Date: 20160824
  Receipt Date: 20160824
  Transmission Date: 20161109
  Serious: No
  Sender: FDA-Public Use
  Company Number: US-MYLANLABS-2015M1042215

PATIENT
  Age: 75 Year
  Sex: Male

DRUGS (1)
  1. NISOLDIPINE. [Suspect]
     Active Substance: NISOLDIPINE
     Dosage: UNK

REACTIONS (4)
  - Oedema peripheral [Unknown]
  - Dysphonia [Unknown]
  - Pharyngitis [Unknown]
  - Weight increased [Unknown]
